FAERS Safety Report 9948405 (Version 1)
Quarter: 2014Q1

REPORT INFORMATION
  Report Type: Report from Study
  Country: US (occurrence: US)
  Receive Date: 20140303
  Receipt Date: 20140303
  Transmission Date: 20141002
  Serious: No
  Sender: FDA-Public Use
  Company Number: US-ABBVIE-13P-163-1059027-00

PATIENT
  Age: 19 Year
  Sex: Female
  Weight: 108.96 kg

DRUGS (4)
  1. HUMIRA [Suspect]
     Indication: PSORIASIS
  2. SPRINTEC BIRTH CONTROL [Concomitant]
     Indication: CONTRACEPTION
  3. PROZAC [Concomitant]
     Indication: DEPRESSION
  4. STELARA [Concomitant]
     Indication: PSORIASIS
     Dates: end: 201302

REACTIONS (2)
  - Injection site pain [Not Recovered/Not Resolved]
  - Psoriasis [Not Recovered/Not Resolved]
